FAERS Safety Report 11807573 (Version 1)
Quarter: 2015Q4

REPORT INFORMATION
  Report Type: Spontaneous
  Country: BR (occurrence: BR)
  Receive Date: 20151207
  Receipt Date: 20151207
  Transmission Date: 20160305
  Serious: Yes (Hospitalization)
  Sender: FDA-Public Use
  Company Number: BR-BAXTER-2015BAX064178

PATIENT
  Age: 38 Year
  Sex: Male
  Weight: 92 kg

DRUGS (8)
  1. MITEXAN [Suspect]
     Active Substance: MESNA
     Indication: MALIGNANT CONNECTIVE TISSUE NEOPLASM
     Dosage: PER CYCLE, FIRST CHEMOTHERAPY CYCLE
     Route: 042
     Dates: start: 20150716
  2. MITEXAN [Suspect]
     Active Substance: MESNA
     Dosage: PER CYCLE, SECOND CHEMOTHERAPY CYCLE
     Route: 042
     Dates: start: 20150806
  3. FAULDOXO [Suspect]
     Active Substance: DOXORUBICIN HYDROCHLORIDE
     Dosage: PER CYCLE, SECOND CHEMOTHERAPY CYCLE
     Route: 042
     Dates: start: 20150806
  4. GENUXAL [Suspect]
     Active Substance: CYCLOPHOSPHAMIDE
     Indication: MALIGNANT CONNECTIVE TISSUE NEOPLASM
     Dosage: PER CYCLE, FIRST CHEMOTHERAPY CYCLE
     Route: 042
     Dates: start: 20150716
  5. FAULDVINCRI [Suspect]
     Active Substance: VINCRISTINE SULFATE
     Indication: MALIGNANT CONNECTIVE TISSUE NEOPLASM
     Dosage: PER CYCLE, FIRST CHEMOTHERAPY CYCLE
     Route: 042
     Dates: start: 20150716
  6. FAULDVINCRI [Suspect]
     Active Substance: VINCRISTINE SULFATE
     Dosage: PER CYCLE, SECOND CHEMOTHERAPY CYCLE
     Route: 042
     Dates: start: 20150806
  7. GENUXAL [Suspect]
     Active Substance: CYCLOPHOSPHAMIDE
     Dosage: PER CYCLE, SECOND CHEMOTHERAPY CYCLE
     Route: 042
     Dates: start: 20150806
  8. FAULDOXO [Suspect]
     Active Substance: DOXORUBICIN HYDROCHLORIDE
     Indication: MALIGNANT CONNECTIVE TISSUE NEOPLASM
     Dosage: PER CYCLE, FIRST CHEMOTHERAPY CYCLE
     Route: 042
     Dates: start: 20150716

REACTIONS (5)
  - Febrile neutropenia [Recovered/Resolved]
  - Febrile neutropenia [Recovered/Resolved]
  - Constipation [Recovered/Resolved]
  - Abdominal pain [Recovered/Resolved]
  - Proctalgia [Recovered/Resolved]

NARRATIVE: CASE EVENT DATE: 20150728
